FAERS Safety Report 25689091 (Version 1)
Quarter: 2025Q3

REPORT INFORMATION
  Report Type: Spontaneous
  Country: US (occurrence: US)
  Receive Date: 20250818
  Receipt Date: 20250818
  Transmission Date: 20251021
  Serious: Yes (Hospitalization, Other)
  Sender: NANJING KING-FRIEND BIOCHEMICAL PHARMACEUTICAL
  Company Number: US-NKFPHARMA-2025MPLIT00288

PATIENT
  Age: 44 Year
  Sex: Male

DRUGS (1)
  1. HEPARIN [Suspect]
     Active Substance: HEPARIN SODIUM
     Indication: Pulmonary embolism
     Route: 065

REACTIONS (4)
  - Haemoperitoneum [Recovering/Resolving]
  - Hepatic haemorrhage [Recovering/Resolving]
  - Splenic haemorrhage [Recovering/Resolving]
  - Hepatic haematoma [Recovering/Resolving]
